FAERS Safety Report 9306270 (Version 1)
Quarter: 2013Q1

REPORT INFORMATION
  Report Type: Spontaneous
  Country: US (occurrence: None)
  Receive Date: 20130304
  Receipt Date: 20130304
  Transmission Date: 20140127
  Serious: Yes (Hospitalization)
  Sender: FDA-Public Use
  Company Number: 145514-1

PATIENT
  Age: 67 Year
  Sex: Male
  Weight: 50 kg

DRUGS (1)
  1. LEUCOVORIN CALCIUM [Suspect]
     Indication: COLORECTAL CANCER METASTATIC
     Dosage: BLINDED INFORMATION WITHHELD; IV
     Route: 042
     Dates: start: 20121009, end: 20121218

REACTIONS (4)
  - Rectal obstruction [None]
  - Malaise [None]
  - White blood cell count decreased [None]
  - Neutrophil count decreased [None]
